FAERS Safety Report 6844535-0 (Version None)
Quarter: 2010Q3

REPORT INFORMATION
  Report Type: 
  Country: None (occurrence: None)
  Receive Date: 20100715
  Receipt Date: 20100701
  Transmission Date: 20110219
  Serious: Yes (Other)
  Sender: FDA-Public Use
  Company Number: PHHY2010US45339

PATIENT
  Age: 8 Year
  Sex: Male

DRUGS (1)
  1. ATOPICA (ANIMAL HEALTH) [Suspect]
     Dosage: 50 MG
     Dates: start: 20100626

REACTIONS (1)
  - URTICARIA [None]
